FAERS Safety Report 4501711-X (Version None)
Quarter: 2004Q3

REPORT INFORMATION
  Report Type: 
  Country: None (occurrence: None)
  Receive Date: 20040927
  Receipt Date: 20040602
  Transmission Date: 20050211
  Serious: No
  Sender: FDA-Public Use
  Company Number: USA040363457

PATIENT
  Age: 10 Year
  Sex: Male
  Weight: 33 kg

DRUGS (1)
  1. STRATTERA [Suspect]
     Indication: ATTENTION DEFICIT/HYPERACTIVITY DISORDER
     Dosage: 25 MG DAY
     Dates: start: 20040329, end: 20040330

REACTIONS (5)
  - ANGER [None]
  - CRYING [None]
  - FEELING OF RELAXATION [None]
  - MUSCULAR WEAKNESS [None]
  - SOMNOLENCE [None]
